FAERS Safety Report 6083152-X (Version None)
Quarter: 2009Q1

REPORT INFORMATION
  Report Type: 
  Country: None (occurrence: None)
  Receive Date: 20090213
  Receipt Date: 20090213
  Transmission Date: 20090719
  Serious: Yes (Other)
  Sender: FDA-Public Use
  Company Number: None

PATIENT
  Sex: Female
  Weight: 78.4723 kg

DRUGS (4)
  1. FEXOFENADINE [Suspect]
     Indication: CHRONIC SINUSITIS
     Dosage: 180MG QD PO
     Route: 048
     Dates: start: 20050101, end: 20050201
  2. FEXOFENADINE [Suspect]
     Indication: RHINITIS
     Dosage: 180MG QD PO
     Route: 048
     Dates: start: 20050101, end: 20050201
  3. MAXAIR [Concomitant]
  4. NASACORT AQ [Concomitant]

REACTIONS (2)
  - PRODUCT QUALITY ISSUE [None]
  - SINUSITIS [None]
